FAERS Safety Report 4445198-4 (Version None)
Quarter: 2004Q3

REPORT INFORMATION
  Report Type: 
  Country: None (occurrence: None)
  Receive Date: 20040819
  Receipt Date: 20030722
  Transmission Date: 20050211
  Serious: Yes (Other)
  Sender: FDA-Public Use
  Company Number: 2003031411

PATIENT
  Sex: Female

DRUGS (4)
  1. NORVASC [Suspect]
     Indication: HYPERTENSION
     Dosage: ORAL
     Route: 048
     Dates: start: 20000101, end: 20020401
  2. FLECAINIDE ACETATE [Suspect]
     Indication: ATRIAL FIBRILLATION
  3. OMEPRAZOLE [Concomitant]
  4. RANITIDINE HYDROCHLORIDE [Concomitant]

REACTIONS (3)
  - HEART RATE DECREASED [None]
  - PRURITUS [None]
  - SKIN DISCOLOURATION [None]
